FAERS Safety Report 8922657 (Version 1)
Quarter: 2012Q4

REPORT INFORMATION
  Report Type: 
  Country: US (occurrence: US)
  Receive Date: 20121125
  Receipt Date: 20121125
  Transmission Date: 20130627
  Serious: Yes (Death, Life-Threatening, Hospitalization)
  Sender: FDA-Public Use
  Company Number: US-BRISTOL-MYERS SQUIBB COMPANY-17081928

PATIENT
  Age: 88 Year
  Sex: Female
  Weight: 77.55 kg

DRUGS (1)
  1. ORENCIA [Suspect]
     Dosage: Total no of doses:45,Vials:3,Last dose 23may2012.
     Dates: start: 20081014, end: 20120523

REACTIONS (8)
  - Sepsis [Fatal]
  - Failure to thrive [Unknown]
  - Pneumonia [Unknown]
  - Respiratory failure [Unknown]
  - Atrial fibrillation [Recovered/Resolved]
  - Fractured sacrum [Unknown]
  - Hypernatraemia [Unknown]
  - Urinary tract infection [Unknown]
